FAERS Safety Report 18399762 (Version 1)
Quarter: 2020Q4

REPORT INFORMATION
  Report Type: Spontaneous
  Country: US (occurrence: US)
  Receive Date: 20201019
  Receipt Date: 20201019
  Transmission Date: 20210114
  Serious: No
  Sender: FDA-Public Use
  Company Number: US-ALLERGAN-2010569US

PATIENT
  Sex: Female

DRUGS (1)
  1. VRAYLAR [Suspect]
     Active Substance: CARIPRAZINE
     Indication: BIPOLAR DISORDER
     Dosage: 4.5 MG, QD

REACTIONS (3)
  - Road traffic accident [Unknown]
  - Eye movement disorder [Unknown]
  - Muscle twitching [Unknown]

NARRATIVE: CASE EVENT DATE: 20200304
